FAERS Safety Report 4322092-0 (Version None)
Quarter: 2004Q1

REPORT INFORMATION
  Report Type: 
  Country: None (occurrence: None)
  Receive Date: 20040323
  Receipt Date: 20040120
  Transmission Date: 20041129
  Serious: Yes (Hospitalization)
  Sender: FDA-Public Use
  Company Number: JP-GLAXOSMITHKLINE-B0320335A

PATIENT
  Age: 40 Year
  Sex: Male
  Weight: 52.5 kg

DRUGS (7)
  1. LAMIVUDINE [Suspect]
     Indication: HIV INFECTION
     Dosage: 300MG PER DAY
     Route: 048
     Dates: start: 20030325
  2. STAVUDINE [Suspect]
     Indication: HIV INFECTION
     Dosage: 60MG PER DAY
     Route: 048
     Dates: start: 20030325
  3. EFAVIRENZ [Suspect]
     Indication: HIV INFECTION
     Dosage: 600MG PER DAY
     Route: 048
     Dates: start: 20030325
  4. SUCRALFATE [Concomitant]
     Indication: INFECTION PROPHYLAXIS
     Dosage: 3MG PER DAY
     Route: 048
     Dates: start: 20030321
  5. SUCRALFATE [Concomitant]
     Indication: PNEUMOCYSTIS CARINII PNEUMONIA
     Dosage: 3MG PER DAY
     Route: 048
     Dates: start: 20030321
  6. SODIUM ALGINATE [Concomitant]
     Indication: INFECTION PROPHYLAXIS
     Dosage: 120ML PER DAY
     Route: 048
     Dates: start: 20030320
  7. SODIUM ALGINATE [Concomitant]
     Indication: PNEUMOCYSTIS CARINII PNEUMONIA
     Dosage: 120ML PER DAY
     Route: 048
     Dates: start: 20030320

REACTIONS (5)
  - BLOOD BETA-D-GLUCAN INCREASED [None]
  - CHEST X-RAY ABNORMAL [None]
  - IMMUNE RECONSTITUTION SYNDROME [None]
  - PNEUMOCYSTIS CARINII PNEUMONIA [None]
  - SPUTUM TEST [None]
